FAERS Safety Report 10475126 (Version 3)
Quarter: 2014Q4

REPORT INFORMATION
  Report Type: Spontaneous
  Country: US (occurrence: None)
  Receive Date: 20140922
  Receipt Date: 20141204
  Transmission Date: 20150528
  Serious: Yes (Hospitalization)
  Sender: FDA-Public Use
  Company Number: 2014-US-010901

PATIENT
  Age: 47 Year
  Sex: Female

DRUGS (1)
  1. XYREM [Suspect]
     Active Substance: SODIUM OXYBATE
     Indication: NARCOLEPSY
     Route: 048
     Dates: start: 201106, end: 201108

REACTIONS (7)
  - Bronchitis [None]
  - Hiatus hernia [None]
  - Chronic obstructive pulmonary disease [None]
  - Drug interaction [None]
  - Somnambulism [None]
  - Anaphylactic reaction [None]
  - Malaise [None]

NARRATIVE: CASE EVENT DATE: 201407
